FAERS Safety Report 7961472-9 (Version None)
Quarter: 2011Q4

REPORT INFORMATION
  Report Type: 
  Country: None (occurrence: None)
  Receive Date: 20111202
  Receipt Date: 20111122
  Transmission Date: 20120403
  Serious: Yes (Other)
  Sender: FDA-Public Use
  Company Number: KAD201111-000065

PATIENT
  Age: 49 Year
  Sex: Male

DRUGS (10)
  1. CISPLATIN [Suspect]
     Indication: MULTIPLE MYELOMA
  2. MELPHALAN HYDROCHLORIDE [Suspect]
     Indication: MULTIPLE MYELOMA
     Dosage: 10 CYCLES
  3. CYTARABINE [Suspect]
     Indication: MULTIPLE MYELOMA
     Dates: start: 19981101
  4. IFOSFAMIDE [Suspect]
     Indication: MULTIPLE MYELOMA
  5. CARMUSTINE [Suspect]
     Indication: MULTIPLE MYELOMA
     Dates: start: 19981101
  6. ETOPOSIDE [Suspect]
     Indication: MULTIPLE MYELOMA
  7. CYCLOPHOSPHAMIDE [Suspect]
     Indication: MULTIPLE MYELOMA
  8. INFERGEN [Suspect]
     Indication: MULTIPLE MYELOMA
     Dosage: 3 X 10 IU THRICE WEEKLY
     Dates: end: 20050901
  9. PREDNISONE TAB [Suspect]
     Indication: MULTIPLE MYELOMA
  10. DEXAMETHASONE [Suspect]
     Indication: MULTIPLE MYELOMA

REACTIONS (4)
  - MULTIPLE MYELOMA [None]
  - STEM CELL TRANSPLANT [None]
  - NEOPLASM PROGRESSION [None]
  - REFRACTORY CYTOPENIA WITH MULTILINEAGE DYSPLASIA [None]
